FAERS Safety Report 14535742 (Version 2)
Quarter: 2018Q1

REPORT INFORMATION
  Report Type: Spontaneous
  Country: US (occurrence: US)
  Receive Date: 20180215
  Receipt Date: 20180222
  Transmission Date: 20180509
  Serious: Yes (Life-Threatening, Other)
  Sender: FDA-Public Use
  Company Number: US-AMGEN-USASP2018017067

PATIENT
  Age: 52 Year
  Sex: Female

DRUGS (11)
  1. CORLANOR [Suspect]
     Active Substance: IVABRADINE HYDROCHLORIDE
     Dosage: 5 MG, BID
     Route: 065
  2. ENALAPRIL [Suspect]
     Active Substance: ENALAPRIL
     Indication: PRODUCT USED FOR UNKNOWN INDICATION
     Dosage: UNK
     Route: 065
  3. CORLANOR [Suspect]
     Active Substance: IVABRADINE HYDROCHLORIDE
     Indication: CARDIAC FAILURE
     Dosage: 2.5 MG, BID
     Route: 065
     Dates: start: 201711
  4. METHIMAZOLE. [Suspect]
     Active Substance: METHIMAZOLE
     Dosage: UNK, TID
     Route: 065
  5. UBIQUINOL [Concomitant]
     Active Substance: UBIQUINOL
     Dosage: UNK
  6. CARVEDILOL. [Suspect]
     Active Substance: CARVEDILOL
     Dosage: 6.25 MG, BID
     Route: 065
  7. CORLANOR [Suspect]
     Active Substance: IVABRADINE HYDROCHLORIDE
     Dosage: 2.5 MG, UNK
     Route: 065
     Dates: start: 20180205
  8. METHIMAZOLE. [Suspect]
     Active Substance: METHIMAZOLE
     Dosage: TOOK 4 INSTEAD OF 2
     Route: 065
  9. CARVEDILOL. [Suspect]
     Active Substance: CARVEDILOL
     Indication: PRODUCT USED FOR UNKNOWN INDICATION
     Dosage: UNK
     Route: 065
     Dates: start: 2017
  10. METHIMAZOLE. [Suspect]
     Active Substance: METHIMAZOLE
     Indication: HYPOTHYROIDISM
     Dosage: 1 DF, BID
     Route: 065
  11. LORAZEPAM. [Concomitant]
     Active Substance: LORAZEPAM
     Indication: SLEEP DISORDER DUE TO A GENERAL MEDICAL CONDITION
     Dosage: UNK

REACTIONS (17)
  - Basedow^s disease [Unknown]
  - Hypothyroidism [Not Recovered/Not Resolved]
  - Cardiac failure congestive [Unknown]
  - Anger [Unknown]
  - Rash [Unknown]
  - Blood pressure decreased [Recovering/Resolving]
  - Dyspnoea [Unknown]
  - Drug-device interaction [Unknown]
  - Sleep disorder due to a general medical condition [Unknown]
  - Thyrotoxic crisis [Unknown]
  - Tremor [Unknown]
  - Weight abnormal [Unknown]
  - Mania [Unknown]
  - Intentional product misuse [Unknown]
  - Heart rate abnormal [Not Recovered/Not Resolved]
  - Influenza [Unknown]
  - Muscle spasticity [Unknown]

NARRATIVE: CASE EVENT DATE: 201712
